FAERS Safety Report 6280613-5 (Version None)
Quarter: 2009Q3

REPORT INFORMATION
  Report Type: 
  Country: None (occurrence: None)
  Receive Date: 20090724
  Receipt Date: 20080929
  Transmission Date: 20100115
  Serious: No
  Sender: FDA-Public Use
  Company Number: A0750974A

PATIENT
  Sex: Male

DRUGS (1)
  1. AVANDIA [Suspect]
     Route: 065
     Dates: start: 20040823

REACTIONS (3)
  - CARDIAC DISORDER [None]
  - FLUID RETENTION [None]
  - RENAL DISORDER [None]
